FAERS Safety Report 9162182 (Version 4)
Quarter: 2014Q1

REPORT INFORMATION
  Report Type: Spontaneous
  Country: GB (occurrence: GB)
  Receive Date: 20130314
  Receipt Date: 20140206
  Transmission Date: 20141002
  Serious: Yes (Other)
  Sender: FDA-Public Use
  Company Number: PHFR2013GB001149

PATIENT
  Sex: Male

DRUGS (5)
  1. CLOZARIL [Suspect]
     Indication: SCHIZOPHRENIA
     Dosage: 500 MG, DAILY
     Route: 048
     Dates: start: 20010701
  2. SULPIRIDE [Concomitant]
     Indication: SCHIZOPHRENIA
     Dosage: 800 MG, (DAILY)
     Route: 048
  3. CO-CODAMOL [Concomitant]
     Indication: PAIN
     Dosage: 6 TO 8 TABET DAILY
     Route: 048
  4. OMEPRAZOLE [Concomitant]
     Indication: GASTRITIS
     Dosage: 20 MG, (DAILY)
     Route: 048
  5. NAPROXEN [Concomitant]
     Indication: PAIN
     Dosage: 1000 MG, DAILY
     Route: 048

REACTIONS (5)
  - Asthma [Recovering/Resolving]
  - Diabetes mellitus [Not Recovered/Not Resolved]
  - Neutrophil count abnormal [Not Recovered/Not Resolved]
  - Leukocytosis [Not Recovered/Not Resolved]
  - Lipids increased [Not Recovered/Not Resolved]
